FAERS Safety Report 9702746 (Version 1)
Quarter: 2013Q4

REPORT INFORMATION
  Report Type: Spontaneous
  Country: US (occurrence: US)
  Receive Date: 20131121
  Receipt Date: 20131121
  Transmission Date: 20140711
  Serious: No
  Sender: FDA-Public Use
  Company Number: US-009507513-1311USA007953

PATIENT
  Sex: Female

DRUGS (1)
  1. NUVARING [Suspect]
     Indication: CONTRACEPTION
     Dosage: 1 RING EVERY THREE WEEKS
     Route: 067
     Dates: start: 201308

REACTIONS (1)
  - Vulvovaginal mycotic infection [Not Recovered/Not Resolved]
